FAERS Safety Report 6377987-3 (Version None)
Quarter: 2009Q3

REPORT INFORMATION
  Report Type: 
  Country: None (occurrence: None)
  Receive Date: 20090925
  Receipt Date: 20090915
  Transmission Date: 20100115
  Serious: Yes (Death)
  Sender: FDA-Public Use
  Company Number: US-TYCO HEALTHCARE/MALLINCKRODT-T200901753

PATIENT
  Age: 11 Year
  Sex: Female

DRUGS (1)
  1. METHYLIN [Suspect]
     Dosage: UNK

REACTIONS (1)
  - SUDDEN DEATH [None]
